FAERS Safety Report 9536347 (Version 1)
Quarter: 2013Q2

REPORT INFORMATION
  Report Type: Spontaneous
  Country: US (occurrence: None)
  Receive Date: 20130507
  Receipt Date: 20130507
  Transmission Date: 20140414
  Serious: Yes (Hospitalization)
  Sender: FDA-Public Use
  Company Number: PHEH2013US001130

PATIENT
  Age: 55 Year
  Sex: Female
  Weight: 63.5 kg

DRUGS (3)
  1. AFINITOR (RAD) [Suspect]
     Indication: BREAST CANCER
     Route: 048
  2. EXEMESTANE [Suspect]
     Indication: BREAST CANCER
     Route: 048
  3. METFORMIN [Concomitant]

REACTIONS (2)
  - Blood creatinine increased [None]
  - Nausea [None]
